FAERS Safety Report 14859065 (Version 2)
Quarter: 2018Q2

REPORT INFORMATION
  Report Type: Spontaneous
  Country: GB (occurrence: GB)
  Receive Date: 20180508
  Receipt Date: 20180510
  Transmission Date: 20180711
  Serious: Yes (Life-Threatening, Hospitalization, Other)
  Sender: FDA-Public Use
  Company Number: PHHY2018GB073197

PATIENT
  Age: 87 Year
  Sex: Female

DRUGS (2)
  1. RIVASTIGMINE. [Suspect]
     Active Substance: RIVASTIGMINE
     Indication: DEMENTIA ALZHEIMER^S TYPE
     Dosage: 4.6 MG (PATCH 5 (CM2)), QD
     Route: 062
     Dates: start: 201310
  2. RIVASTIGMINE. [Suspect]
     Active Substance: RIVASTIGMINE
     Dosage: 9.5 MG (PATCH 10 (CM2)), QD
     Route: 062

REACTIONS (9)
  - Hypertension [Unknown]
  - Fall [Unknown]
  - Hip fracture [Recovered/Resolved]
  - Loss of consciousness [Recovered/Resolved]
  - Bradycardia [Unknown]
  - Atrioventricular block [Recovered/Resolved]
  - Femur fracture [Recovered/Resolved]
  - Electrocardiogram PR prolongation [Recovered/Resolved]
  - Circulatory collapse [Recovered/Resolved]
